FAERS Safety Report 7091750-X (Version None)
Quarter: 2010Q4

REPORT INFORMATION
  Report Type: 
  Country: None (occurrence: None)
  Receive Date: 20101109
  Receipt Date: 20101028
  Transmission Date: 20110411
  Serious: Yes (Death)
  Sender: FDA-Public Use
  Company Number: US-WATSON-2010-14471

PATIENT
  Age: 36 Year
  Sex: Male

DRUGS (1)
  1. FORTAMET [Suspect]
     Indication: DIABETES MELLITUS
     Dosage: 500 MG, BID
     Route: 048

REACTIONS (3)
  - HEPATORENAL SYNDROME [None]
  - LACTIC ACIDOSIS [None]
  - MULTI-ORGAN FAILURE [None]
